FAERS Safety Report 14834986 (Version 6)
Quarter: 2019Q1

REPORT INFORMATION
  Report Type: Spontaneous
  Country: US (occurrence: US)
  Receive Date: 20180501
  Receipt Date: 20190124
  Transmission Date: 20190417
  Serious: Yes (Hospitalization)
  Sender: FDA-Public Use
  Company Number: US-VIFOR (INTERNATIONAL) INC.-VIT-2018-03991

PATIENT
  Sex: Male
  Weight: 145.28 kg

DRUGS (17)
  1. ATROPINE SULFATE. [Concomitant]
     Active Substance: ATROPINE SULFATE
  2. COMBIGAN [Concomitant]
     Active Substance: BRIMONIDINE TARTRATE\TIMOLOL MALEATE
  3. BUMETANIDE. [Concomitant]
     Active Substance: BUMETANIDE
  4. AMLODIPINE BESYLATE. [Concomitant]
     Active Substance: AMLODIPINE BESYLATE
  5. FUROSEMIDE. [Concomitant]
     Active Substance: FUROSEMIDE
  6. COLACE CLEAR [Concomitant]
     Active Substance: DOCUSATE SODIUM
  7. TYLENOL 8HR [Concomitant]
     Active Substance: ACETAMINOPHEN
  8. CARVEDILOL. [Concomitant]
     Active Substance: CARVEDILOL
  9. LANTUS [Concomitant]
     Active Substance: INSULIN GLARGINE
  10. VELTASSA [Suspect]
     Active Substance: PATIROMER
     Indication: HYPERKALAEMIA
     Route: 048
     Dates: start: 2018
  11. VITAMIN D3 [Concomitant]
     Active Substance: CHOLECALCIFEROL
  12. VELTASSA [Suspect]
     Active Substance: PATIROMER
     Route: 048
     Dates: start: 20180410
  13. NOVOLOG [Concomitant]
     Active Substance: INSULIN ASPART
  14. ATORVASTATIN CALCIUM. [Concomitant]
     Active Substance: ATORVASTATIN CALCIUM
  15. CALCITRIOL. [Concomitant]
     Active Substance: CALCITRIOL
  16. LEVEMER FLEX TOUCH [Concomitant]
  17. SODIUM BICARBONATE. [Concomitant]
     Active Substance: SODIUM BICARBONATE

REACTIONS (4)
  - Fatigue [Not Recovered/Not Resolved]
  - Muscle spasms [Recovered/Resolved]
  - Constipation [Not Recovered/Not Resolved]
  - Hyperkalaemia [Recovered/Resolved]

NARRATIVE: CASE EVENT DATE: 2018
